FAERS Safety Report 10300176 (Version 1)
Quarter: 2014Q3

REPORT INFORMATION
  Report Type: Report from Study
  Country: MX (occurrence: MX)
  Receive Date: 20140711
  Receipt Date: 20140711
  Transmission Date: 20150326
  Serious: Yes (Hospitalization)
  Sender: FDA-Public Use
  Company Number: MX-ABBVIE-14P-107-1258980-00

PATIENT
  Age: 44 Year
  Sex: Female
  Weight: 59.5 kg

DRUGS (1)
  1. HUMIRA [Suspect]
     Active Substance: ADALIMUMAB
     Indication: RHEUMATOID ARTHRITIS
     Route: 058
     Dates: start: 20131126

REACTIONS (5)
  - Dermatitis allergic [Unknown]
  - Erythema [Recovering/Resolving]
  - Injection site pruritus [Recovering/Resolving]
  - Intracardiac mass [Unknown]
  - Injection site haematoma [Unknown]

NARRATIVE: CASE EVENT DATE: 201404
